FAERS Safety Report 5924644-0 (Version None)
Quarter: 2008Q4

REPORT INFORMATION
  Report Type: 
  Country: None (occurrence: None)
  Receive Date: 20081016
  Receipt Date: 20080929
  Transmission Date: 20090506
  Serious: Yes (Hospitalization)
  Sender: FDA-Public Use
  Company Number: 002#2#2008-00662

PATIENT
  Age: 69 Year
  Sex: Male
  Weight: 104.3273 kg

DRUGS (4)
  1. NEUPRO [Suspect]
     Indication: DRUG USE FOR UNKNOWN INDICATION
     Dosage: 4MG/24H, 1 IN 1D, TRANSDERMAL
     Route: 062
     Dates: start: 20071001, end: 20080530
  2. ZELAPAR [Concomitant]
  3. SIMVASTATIN [Concomitant]
  4. ASPIRIN [Concomitant]

REACTIONS (2)
  - INTRACRANIAL ANEURYSM [None]
  - PRODUCT QUALITY ISSUE [None]
